FAERS Safety Report 20633237 (Version 1)
Quarter: 2022Q1

REPORT INFORMATION
  Report Type: Report from Study
  Country: AR (occurrence: AR)
  Receive Date: 20220324
  Receipt Date: 20220324
  Transmission Date: 20220423
  Serious: Yes (Other)
  Sender: FDA-Public Use
  Company Number: AR-PFIZER INC-202101624726

PATIENT
  Age: 46 Year
  Sex: Female
  Weight: 72 kg

DRUGS (6)
  1. NIRMATRELVIR [Suspect]
     Active Substance: NIRMATRELVIR
     Indication: COVID-19
     Dosage: EVERY 12 HOURS FOR 5 DAYS
     Route: 048
     Dates: start: 20211105, end: 20211109
  2. PLACEBO [Suspect]
     Active Substance: UNSPECIFIED INGREDIENT
     Indication: COVID-19
     Dosage: EVERY 12 HOURS FOR 5 DAYS
     Route: 048
     Dates: start: 20211105, end: 20211109
  3. PLACEBO [Suspect]
     Active Substance: UNSPECIFIED INGREDIENT
     Indication: COVID-19
     Dosage: EVERY 12 HOURS FOR 5 DAYS
     Route: 048
     Dates: start: 20211105, end: 20211109
  4. RITONAVIR [Suspect]
     Active Substance: RITONAVIR
     Indication: COVID-19
     Dosage: EVERY 12 HOURS FOR 5 DAYS
     Route: 048
     Dates: start: 20211105, end: 20211109
  5. DROSPIRENONE\ETHINYL ESTRADIOL [Concomitant]
     Active Substance: DROSPIRENONE\ETHINYL ESTRADIOL
     Indication: Contraception
     Dosage: 1 DF, EVERY 24 HOURS
     Route: 048
     Dates: start: 20211105
  6. DEXAMETHASONE [Concomitant]
     Active Substance: DEXAMETHASONE
     Indication: Antiinflammatory therapy
     Dosage: 8 MG EV, 2X/DAY (TWICE DAILY)
     Dates: start: 20211105, end: 20211117

REACTIONS (2)
  - Adenocarcinoma of colon [Not Recovered/Not Resolved]
  - Metastases to liver [Not Recovered/Not Resolved]

NARRATIVE: CASE EVENT DATE: 20211113
